FAERS Safety Report 18397041 (Version 1)
Quarter: 2020Q4

REPORT INFORMATION
  Report Type: Spontaneous
  Country: US (occurrence: US)
  Receive Date: 20201016
  Receipt Date: 20201016
  Transmission Date: 20210114
  Serious: No
  Sender: FDA-Public Use
  Company Number: None

PATIENT
  Age: 63 Year
  Sex: Female
  Weight: 66.6 kg

DRUGS (24)
  1. LEVOTHYROXINE. [Concomitant]
     Active Substance: LEVOTHYROXINE
  2. ALLOPURINOL. [Concomitant]
     Active Substance: ALLOPURINOL
  3. JANUVIA [Concomitant]
     Active Substance: SITAGLIPTIN PHOSPHATE
  4. DEPAKOTE/DIVALPROEX [Concomitant]
  5. PANTOPRAZOLE [Concomitant]
     Active Substance: PANTOPRAZOLE
  6. CYCLOBENZAPRINE 10MG [Suspect]
     Active Substance: CYCLOBENZAPRINE
     Indication: SCIATICA
     Dosage: ?          QUANTITY:60 TABLET(S);?
     Route: 048
     Dates: start: 20201002, end: 20201008
  7. NATEGLINIDE. [Concomitant]
     Active Substance: NATEGLINIDE
  8. LOSARTAN. [Concomitant]
     Active Substance: LOSARTAN
  9. AMITIZA [Concomitant]
     Active Substance: LUBIPROSTONE
  10. ZEITA/EZETIMIBE [Concomitant]
  11. FERROUS SULFATE. [Concomitant]
     Active Substance: FERROUS SULFATE
  12. FOLIC ACID. [Concomitant]
     Active Substance: FOLIC ACID
  13. VITAMIN D3 [Concomitant]
     Active Substance: CHOLECALCIFEROL
  14. VITAMIN B12 [Concomitant]
     Active Substance: CYANOCOBALAMIN
  15. DICLOFENAC SODIUM. [Concomitant]
     Active Substance: DICLOFENAC SODIUM
  16. HYDROCORTISONE CREAM [Concomitant]
     Active Substance: HYDROCORTISONE
  17. SILVER SULFADIAZINE. [Concomitant]
     Active Substance: SILVER SULFADIAZINE
  18. ALPHA LOPOIC [Concomitant]
  19. BETAMETHASONE VALERATE. [Concomitant]
     Active Substance: BETAMETHASONE VALERATE
  20. LANTUS [Concomitant]
     Active Substance: INSULIN GLARGINE
  21. PIOGLITAZONE. [Concomitant]
     Active Substance: PIOGLITAZONE
  22. FENOFIBRATE. [Concomitant]
     Active Substance: FENOFIBRATE
  23. B6 [Concomitant]
     Active Substance: PYRIDOXINE HYDROCHLORIDE
  24. OCEAN BLUE 2100 OMEGA OIL [Concomitant]

REACTIONS (6)
  - Gait disturbance [None]
  - Mood swings [None]
  - Therapy change [None]
  - Pain in extremity [None]
  - Bipolar disorder [None]
  - Condition aggravated [None]

NARRATIVE: CASE EVENT DATE: 20201002
